FAERS Safety Report 8525953 (Version 2)
Quarter: 2013Q4

REPORT INFORMATION
  Report Type: Spontaneous
  Country: FR (occurrence: FR)
  Receive Date: 20120423
  Receipt Date: 20131004
  Transmission Date: 20140711
  Serious: Yes (Other)
  Sender: FDA-Public Use
  Company Number: FR-ASTRAZENECA-2012SE24708

PATIENT
  Age: 811 Month
  Sex: Male

DRUGS (12)
  1. CRESTOR [Suspect]
     Indication: DYSLIPIDAEMIA
     Route: 048
     Dates: start: 2004, end: 2013
  2. AMLOR [Suspect]
     Indication: HYPERTENSION
     Route: 048
     Dates: start: 2004
  3. INIPOMP [Suspect]
     Route: 048
     Dates: start: 2004, end: 20120307
  4. KARDEGIC [Suspect]
     Indication: CONGESTIVE CARDIOMYOPATHY
     Route: 048
     Dates: start: 2004, end: 20120307
  5. VASTAREL [Suspect]
     Indication: CONGESTIVE CARDIOMYOPATHY
     Route: 048
     Dates: start: 2004, end: 20120307
  6. MOLSIDOMINE [Suspect]
     Indication: CONGESTIVE CARDIOMYOPATHY
     Route: 048
     Dates: start: 2004, end: 201203
  7. MOLSIDOMINE [Suspect]
     Indication: CONGESTIVE CARDIOMYOPATHY
     Route: 048
     Dates: start: 201203
  8. CARDENSIEL [Suspect]
     Indication: CONGESTIVE CARDIOMYOPATHY
     Route: 048
     Dates: start: 2004
  9. TAREG [Suspect]
     Indication: HYPERTENSION
     Route: 048
     Dates: start: 2004
  10. EZETROL [Suspect]
     Indication: DYSLIPIDAEMIA
     Route: 048
     Dates: start: 2004
  11. IKOREL [Suspect]
     Indication: CONGESTIVE CARDIOMYOPATHY
     Route: 048
     Dates: start: 2004
  12. PREVISCAN [Suspect]
     Indication: ATRIAL FIBRILLATION
     Route: 048
     Dates: start: 2004

REACTIONS (1)
  - Hyperhidrosis [Recovered/Resolved]
